FAERS Safety Report 19080299 (Version 3)
Quarter: 2021Q3

REPORT INFORMATION
  Report Type: Report from Study
  Country: None (occurrence: US)
  Receive Date: 20210401
  Receipt Date: 20210719
  Transmission Date: 20211014
  Serious: Yes (Hospitalization)
  Sender: FDA-Public Use
  Company Number: US-ABBVIE-21K-163-3833958-00

PATIENT
  Sex: Female
  Weight: 136.2 kg

DRUGS (5)
  1. LEXAPRO [Concomitant]
     Active Substance: ESCITALOPRAM OXALATE
     Indication: PRODUCT USED FOR UNKNOWN INDICATION
  2. LEVOTHROID [Concomitant]
     Active Substance: LEVOTHYROXINE SODIUM
     Indication: PRODUCT USED FOR UNKNOWN INDICATION
  3. WELLBUTRIN [Concomitant]
     Active Substance: BUPROPION HYDROCHLORIDE
     Indication: PRODUCT USED FOR UNKNOWN INDICATION
  4. CRESTAR [Concomitant]
     Active Substance: ROSUVASTATIN CALCIUM
     Indication: PRODUCT USED FOR UNKNOWN INDICATION
  5. HUMIRA [Suspect]
     Active Substance: ADALIMUMAB
     Indication: ANKYLOSING SPONDYLITIS
     Dosage: CITRATE FREE
     Route: 058

REACTIONS (7)
  - Abdominal pain [Unknown]
  - Pain [Unknown]
  - Small intestinal obstruction [Unknown]
  - Constipation [Unknown]
  - Muscle spasms [Unknown]
  - Nausea [Unknown]
  - Diarrhoea [Unknown]

NARRATIVE: CASE EVENT DATE: 2021
